FAERS Safety Report 4870897-X (Version None)
Quarter: 2005Q4

REPORT INFORMATION
  Report Type: 
  Country: None (occurrence: None)
  Receive Date: 20051229
  Receipt Date: 20051213
  Transmission Date: 20060501
  Serious: Yes (Hospitalization)
  Sender: FDA-Public Use
  Company Number: 2005-01787

PATIENT
  Age: 67 Year
  Sex: Male
  Weight: 65.3 kg

DRUGS (1)
  1. VELCADE [Suspect]
     Indication: MULTIPLE MYELOMA
     Dosage: 2.50 MG, 2/WEEK, INTRAVENOUS
     Route: 042
     Dates: start: 20050517, end: 20050812

REACTIONS (3)
  - ANXIETY [None]
  - DYSPNOEA [None]
  - SUPRAVENTRICULAR TACHYCARDIA [None]
